FAERS Safety Report 9496822 (Version 2)
Quarter: 2013Q3

REPORT INFORMATION
  Report Type: Spontaneous
  Country: CN (occurrence: None)
  Receive Date: 20130830
  Receipt Date: 20130830
  Transmission Date: 20140515
  Serious: Yes (Other)
  Sender: FDA-Public Use
  Company Number: 7232588

PATIENT
  Age: 31 Year
  Sex: Male

DRUGS (2)
  1. EUTHYROX [Suspect]
     Indication: THYROID CANCER
     Route: 048
     Dates: start: 20130803, end: 20130818
  2. ORYZANOL (ORYZANOL) (ORYZANOL) [Concomitant]

REACTIONS (2)
  - Hypotension [None]
  - Heart rate increased [None]
